FAERS Safety Report 8407860-8 (Version None)
Quarter: 2012Q2

REPORT INFORMATION
  Report Type: 
  Country: None (occurrence: None)
  Receive Date: 20120604
  Receipt Date: 20120521
  Transmission Date: 20120825
  Serious: No
  Sender: FDA-Public Use
  Company Number: US-ENDO PHARMACEUTICALS INC.-MSER20120055

PATIENT
  Sex: Male

DRUGS (3)
  1. OPANA ER [Concomitant]
     Indication: PAIN
     Dosage: UNKNOWN
     Route: 048
  2. MORPHINE SULFATE [Suspect]
     Indication: PAIN
     Route: 048
     Dates: start: 20120101
  3. MORPHINE SULFATE [Suspect]
     Route: 048

REACTIONS (2)
  - SOMNOLENCE [None]
  - DRUG INEFFECTIVE [None]
